FAERS Safety Report 15673054 (Version 3)
Quarter: 2019Q1

REPORT INFORMATION
  Report Type: Spontaneous
  Country: US (occurrence: US)
  Receive Date: 20181129
  Receipt Date: 20190103
  Transmission Date: 20190417
  Serious: Yes (Hospitalization)
  Sender: FDA-Public Use
  Company Number: US-OTSUKA-2018_016921

PATIENT
  Age: 59 Year
  Sex: Female

DRUGS (17)
  1. ESTRADIOL. [Concomitant]
     Active Substance: ESTRADIOL
     Indication: PRODUCT USED FOR UNKNOWN INDICATION
     Dosage: 0.05 MG, QD
     Route: 062
     Dates: start: 20131024
  2. VITAMIN D [Concomitant]
     Active Substance: CHOLECALCIFEROL
     Indication: PRODUCT USED FOR UNKNOWN INDICATION
     Dosage: UNK
     Route: 065
  3. PRILOSEC [Concomitant]
     Active Substance: OMEPRAZOLE MAGNESIUM
     Indication: PRODUCT USED FOR UNKNOWN INDICATION
     Dosage: UNK
     Route: 065
  4. LEXAPRO [Concomitant]
     Active Substance: ESCITALOPRAM OXALATE
     Indication: PRODUCT USED FOR UNKNOWN INDICATION
     Dosage: 20 MG, QD
     Route: 065
     Dates: start: 20131226
  5. AMOXICILLIN. [Concomitant]
     Active Substance: AMOXICILLIN
     Indication: PRODUCT USED FOR UNKNOWN INDICATION
     Dosage: 875 MG, UNK
     Route: 048
  6. ABILIFY [Suspect]
     Active Substance: ARIPIPRAZOLE
     Indication: PRODUCT USED FOR UNKNOWN INDICATION
     Dosage: 5 MG, UNK
     Route: 065
     Dates: start: 2011, end: 2015
  7. ALPRAZOLAM. [Concomitant]
     Active Substance: ALPRAZOLAM
     Indication: ANXIETY
     Dosage: 0.5 MG, (1 TABLET AS NEEDED)
     Route: 048
     Dates: start: 20121207
  8. LOSARTAN POTASSIUM. [Concomitant]
     Active Substance: LOSARTAN POTASSIUM
     Indication: PRODUCT USED FOR UNKNOWN INDICATION
     Dosage: 50 MG, QD
     Route: 048
     Dates: start: 20121217
  9. ATENOLOL. [Concomitant]
     Active Substance: ATENOLOL
     Indication: PRODUCT USED FOR UNKNOWN INDICATION
     Dosage: 50 MG, QD
     Route: 065
  10. DIOVAN [Concomitant]
     Active Substance: VALSARTAN
     Indication: PRODUCT USED FOR UNKNOWN INDICATION
     Dosage: 80 MG, QD
     Route: 065
  11. IBUPROFEN. [Concomitant]
     Active Substance: IBUPROFEN
     Indication: PRODUCT USED FOR UNKNOWN INDICATION
     Dosage: 800 MG, TID (AS NEEDED FOR FOOD)
     Route: 048
     Dates: start: 20121217
  12. ZOFRAN [Concomitant]
     Active Substance: ONDANSETRON HYDROCHLORIDE
     Indication: PRODUCT USED FOR UNKNOWN INDICATION
  13. ABILIFY [Suspect]
     Active Substance: ARIPIPRAZOLE
     Dosage: UNK
     Route: 065
  14. XANAX [Concomitant]
     Active Substance: ALPRAZOLAM
     Indication: PRODUCT USED FOR UNKNOWN INDICATION
     Dosage: UNK
     Route: 065
  15. AMBIEN [Concomitant]
     Active Substance: ZOLPIDEM TARTRATE
     Indication: PRODUCT USED FOR UNKNOWN INDICATION
     Dosage: UNK
     Route: 065
  16. ZOLPIDEM TARTRATE. [Concomitant]
     Active Substance: ZOLPIDEM TARTRATE
     Indication: PRODUCT USED FOR UNKNOWN INDICATION
     Dosage: 10 MG, QD  (1 TABLET AT BEDTIME)
     Route: 048
     Dates: start: 20121231
  17. MECLIZINE HCL [Concomitant]
     Active Substance: MECLIZINE HYDROCHLORIDE
     Indication: PRODUCT USED FOR UNKNOWN INDICATION
     Dosage: 25 MG, UNK
     Route: 048

REACTIONS (55)
  - Chest pain [Unknown]
  - Chronic gastritis [Unknown]
  - Haemoglobin decreased [Unknown]
  - Chest discomfort [Unknown]
  - Cough [Unknown]
  - Memory impairment [Unknown]
  - Restlessness [Unknown]
  - Abdominal discomfort [Unknown]
  - Hot flush [Unknown]
  - Glomerular filtration rate decreased [Unknown]
  - Feeling abnormal [Unknown]
  - Musculoskeletal pain [Unknown]
  - Palpitations [Unknown]
  - Nausea [Unknown]
  - Dyspnoea [Unknown]
  - Abdominal pain upper [Unknown]
  - Blood pressure increased [Unknown]
  - Neutrophil count decreased [Unknown]
  - Obsessive-compulsive disorder [Unknown]
  - Gambling disorder [Unknown]
  - Abdominal distension [Unknown]
  - Cataract [Unknown]
  - Mean cell haemoglobin decreased [Unknown]
  - Fear [Unknown]
  - Red blood cell count increased [Unknown]
  - Blood potassium decreased [Unknown]
  - Disturbance in attention [Unknown]
  - Fatigue [Unknown]
  - Loss of employment [Unknown]
  - Mean cell volume decreased [Unknown]
  - Emotional distress [Unknown]
  - Low density lipoprotein increased [Unknown]
  - Pain [Unknown]
  - Hypersensitivity [Unknown]
  - Weight increased [Unknown]
  - Hyperhidrosis [Unknown]
  - Economic problem [Unknown]
  - Tearfulness [Unknown]
  - Chills [Unknown]
  - Paraesthesia [Unknown]
  - Lymphocyte count increased [Unknown]
  - Pollakiuria [Unknown]
  - Insomnia [Unknown]
  - Abdominal pain [Unknown]
  - Anhedonia [Unknown]
  - Lymphadenopathy mediastinal [Unknown]
  - Apathy [Unknown]
  - Sinus tachycardia [Unknown]
  - Blood glucose increased [Unknown]
  - Anxiety [Unknown]
  - Dizziness [Unknown]
  - Vomiting [Unknown]
  - Injury [Unknown]
  - Hypoaesthesia [Unknown]
  - Influenza like illness [Unknown]

NARRATIVE: CASE EVENT DATE: 2011
